FAERS Safety Report 8120943-5 (Version None)
Quarter: 2012Q1

REPORT INFORMATION
  Report Type: 
  Country: None (occurrence: None)
  Receive Date: 20120203
  Receipt Date: 20120124
  Transmission Date: 20120608
  Serious: Yes (Other)
  Sender: FDA-Public Use
  Company Number: 2012SP005357

PATIENT
  Age: 56 Year
  Sex: Male

DRUGS (6)
  1. VICTRELIS [Suspect]
     Indication: HEPATIC CIRRHOSIS
     Dosage: 800 MG;TID
     Dates: start: 20111201, end: 20111201
  2. VICTRELIS [Suspect]
     Indication: HEPATITIS C
     Dosage: 800 MG;TID
     Dates: start: 20111201, end: 20111201
  3. PEGINTERFERON ALFA-2B [Suspect]
     Indication: HEPATITIS C
     Dosage: 180 NG;QW
     Dates: start: 20111201
  4. PEGINTERFERON ALFA-2B [Suspect]
     Indication: HEPATIC CIRRHOSIS
     Dosage: 180 NG;QW
     Dates: start: 20111201
  5. RIBAVIRIN [Suspect]
     Indication: HEPATIC CIRRHOSIS
     Dosage: 1200 MG;QD
     Dates: start: 20111201
  6. RIBAVIRIN [Suspect]
     Indication: HEPATITIS C
     Dosage: 1200 MG;QD
     Dates: start: 20111201

REACTIONS (2)
  - CAECITIS [None]
  - NEUTROPENIA [None]
